FAERS Safety Report 9597105 (Version 2)
Quarter: 2013Q4

REPORT INFORMATION
  Report Type: Spontaneous
  Country: DE (occurrence: DE)
  Receive Date: 20131004
  Receipt Date: 20131120
  Transmission Date: 20140711
  Serious: No
  Sender: FDA-Public Use
  Company Number: DE-BAXTER-2013BAX038320

PATIENT
  Sex: 0

DRUGS (1)
  1. CEPROTIN 500 I.E. [Suspect]
     Indication: PROTEIN C DEFICIENCY
     Route: 058

REACTIONS (1)
  - Injection site haematoma [Unknown]
